FAERS Safety Report 25126287 (Version 1)
Quarter: 2025Q1

REPORT INFORMATION
  Report Type: Report from Study
  Country: US (occurrence: US)
  Receive Date: 20250327
  Receipt Date: 20250327
  Transmission Date: 20250409
  Serious: Yes (Death, Disabling)
  Sender: ABBVIE
  Company Number: US-ABBVIE-6198329

PATIENT
  Sex: Male

DRUGS (1)
  1. CREON [Suspect]
     Active Substance: PANCRELIPASE AMYLASE\PANCRELIPASE LIPASE\PANCRELIPASE PROTEASE
     Indication: Product used for unknown indication
     Route: 048
     Dates: start: 2024

REACTIONS (5)
  - Death [Fatal]
  - Pneumonia [Unknown]
  - Illness [Unknown]
  - Diabetes mellitus [Unknown]
  - Amputee [Unknown]
